FAERS Safety Report 8165828-3 (Version None)
Quarter: 2012Q1

REPORT INFORMATION
  Report Type: 
  Country: None (occurrence: None)
  Receive Date: 20120223
  Receipt Date: 20120223
  Transmission Date: 20120608
  Serious: Yes (Other)
  Sender: FDA-Public Use
  Company Number: None

PATIENT
  Age: 27 Year
  Sex: Female
  Weight: 63.5036 kg

DRUGS (1)
  1. SULFAMETHOXAZOLE [Suspect]
     Dosage: 2X A DAY

REACTIONS (3)
  - ERYTHEMA [None]
  - URTICARIA [None]
  - BLISTER [None]
